FAERS Safety Report 8080803-5 (Version None)
Quarter: 2012Q1

REPORT INFORMATION
  Report Type: 
  Country: None (occurrence: None)
  Receive Date: 20120130
  Receipt Date: 20120117
  Transmission Date: 20120608
  Serious: Yes (Hospitalization)
  Sender: FDA-Public Use
  Company Number: FR-ROCHE-1031316

PATIENT
  Sex: Male

DRUGS (16)
  1. PRE DOPA [Concomitant]
     Route: 048
  2. ASPIRIN [Concomitant]
  3. CORDARONE [Concomitant]
     Route: 048
  4. ESCITALOPRAM OXALATE [Concomitant]
     Route: 048
  5. ROCEPHIN [Suspect]
     Indication: PRODUCT USED FOR UNKNOWN INDICATION
     Route: 042
     Dates: start: 20110903, end: 20110923
  6. GLUCOPHAGE [Concomitant]
     Route: 048
  7. NEXIUM [Concomitant]
     Route: 048
  8. CRESTOR [Concomitant]
     Route: 048
  9. CIPROFLOXACIN [Concomitant]
     Dates: start: 20110901, end: 20110902
  10. METFFORMIN HYDROCHLORIDE [Concomitant]
  11. CANDESARTAN CILEXETIL AND HYDROCHLOROTHIAZIDE [Concomitant]
     Route: 048
  12. BISOPROLOL FUMARATE [Concomitant]
     Route: 048
  13. IKOREL [Concomitant]
  14. PIPERACILLIN/TAZOBACTAM [Concomitant]
     Route: 042
     Dates: start: 20110901, end: 20110902
  15. ATACAND [Concomitant]
  16. AMLODIPINE BESYLATE [Concomitant]

REACTIONS (1)
  - RENAL FAILURE ACUTE [None]
